FAERS Safety Report 5911996-0 (Version None)
Quarter: 2008Q4

REPORT INFORMATION
  Report Type: 
  Country: None (occurrence: None)
  Receive Date: 20081008
  Receipt Date: 20081003
  Transmission Date: 20090506
  Serious: Yes (Death, Hospitalization, Other)
  Sender: FDA-Public Use
  Company Number: PHRM2004FR01544

PATIENT
  Sex: Female

DRUGS (4)
  1. COMTAN [Suspect]
     Indication: PARKINSON'S DISEASE
     Dosage: 600 MG/DAY
     Route: 048
     Dates: start: 20031215, end: 20040330
  2. COMTAN [Suspect]
     Dosage: 200 MG/DAY
  3. MODOPAR [Concomitant]
     Indication: PARKINSON'S DISEASE
     Route: 048
  4. VENLAFAXINE HCL [Concomitant]
     Dosage: 37.5 MG/DAY

REACTIONS (7)
  - ANOREXIA [None]
  - BIOPSY COLON ABNORMAL [None]
  - COLITIS [None]
  - COLITIS ISCHAEMIC [None]
  - DIARRHOEA [None]
  - DIVERTICULUM INTESTINAL [None]
  - WEIGHT DECREASED [None]
